FAERS Safety Report 9480996 (Version 2)
Quarter: 2013Q3

REPORT INFORMATION
  Report Type: Spontaneous
  Country: US (occurrence: US)
  Receive Date: 20130828
  Receipt Date: 20130828
  Transmission Date: 20140515
  Serious: Yes (Other)
  Sender: FDA-Public Use
  Company Number: US-AMGEN-KDL141984

PATIENT
  Age: 53 Year
  Sex: Female

DRUGS (4)
  1. ENBREL [Suspect]
     Indication: RHEUMATOID ARTHRITIS
     Dosage: 25 MG, 2 TIMES/WK
     Route: 058
     Dates: start: 20050401, end: 20050708
  2. ENBREL [Suspect]
     Indication: PSORIATIC ARTHROPATHY
  3. ENBREL [Suspect]
     Indication: PSORIASIS
  4. METHOTREXATE [Concomitant]
     Dosage: 10 MG, QWK
     Route: 065
     Dates: start: 2004

REACTIONS (14)
  - Demyelination [Unknown]
  - Thought blocking [Unknown]
  - Coordination abnormal [Unknown]
  - Gait disturbance [Unknown]
  - Headache [Unknown]
  - Depression [Unknown]
  - Condition aggravated [Unknown]
  - Hypoaesthesia [Unknown]
  - Paraesthesia [Unknown]
  - Night sweats [Unknown]
  - Visual impairment [Unknown]
  - Joint swelling [Unknown]
  - Tremor [Unknown]
  - Dyskinesia [Unknown]
